FAERS Safety Report 6930651-1 (Version None)
Quarter: 2010Q3

REPORT INFORMATION
  Report Type: 
  Country: None (occurrence: None)
  Receive Date: 20100818
  Receipt Date: 20100505
  Transmission Date: 20110219
  Serious: No
  Sender: FDA-Public Use
  Company Number: A0858398A

PATIENT
  Age: 18 Year
  Sex: Male

DRUGS (3)
  1. COREG CR [Suspect]
     Indication: MYOCARDITIS
     Dosage: 40MG PER DAY
     Route: 048
     Dates: start: 20090601, end: 20090701
  2. COREG [Suspect]
     Indication: MYOCARDITIS
     Dosage: 6.5MG TWICE PER DAY
     Route: 048
     Dates: start: 20090701, end: 20090901
  3. LISINOPRIL [Concomitant]

REACTIONS (6)
  - ANXIETY [None]
  - DEPRESSION [None]
  - FATIGUE [None]
  - INSOMNIA [None]
  - SENSORY DISTURBANCE [None]
  - WITHDRAWAL SYNDROME [None]
